FAERS Safety Report 8001706-8 (Version None)
Quarter: 2011Q4

REPORT INFORMATION
  Report Type: 
  Country: None (occurrence: None)
  Receive Date: 20111222
  Receipt Date: 20111214
  Transmission Date: 20120403
  Serious: Yes (Other)
  Sender: FDA-Public Use
  Company Number: CA-JNJFOC-20111206444

PATIENT
  Sex: Male

DRUGS (1)
  1. REMICADE [Suspect]
     Indication: SYMPATHETIC OPHTHALMIA
     Dosage: 6 VIALS FOR 0, 2, 6 WEEKS
     Route: 042

REACTIONS (1)
  - CATARACT OPERATION [None]
